FAERS Safety Report 7272437-7 (Version None)
Quarter: 2011Q1

REPORT INFORMATION
  Report Type: 
  Country: None (occurrence: None)
  Receive Date: 20110127
  Receipt Date: 20110110
  Transmission Date: 20110831
  Serious: Yes (Other)
  Sender: FDA-Public Use
  Company Number: THQ2011A00171

PATIENT
  Age: 70 Year
  Sex: Female

DRUGS (7)
  1. LOSARTAN POTASSIUM [Concomitant]
  2. CALCIUM CARBONATE, VITAMINA D(CALCIUM CARBONATE, VITAMIN D NOS) [Concomitant]
  3. ACTOS [Suspect]
     Indication: DIABETES MELLITUS
     Dosage: 30 MG (30 MG,1 IN 24 HR) PER ORAL
     Route: 048
  4. METFORMIN HYDROCHLORIDE [Concomitant]
  5. GLIMEPIRIDE [Concomitant]
  6. RASLY (ALL OTHER THERAPEUTIC PRODUCTS) [Concomitant]
  7. HOMEOPATHIC MEDICINE(HOMEOPATHIC PREPARATION) [Concomitant]

REACTIONS (2)
  - MYOCARDIAL ISCHAEMIA [None]
  - FATIGUE [None]
